FAERS Safety Report 17169022 (Version 1)
Quarter: 2019Q4

REPORT INFORMATION
  Report Type: Spontaneous
  Country: US (occurrence: US)
  Receive Date: 20191218
  Receipt Date: 20191218
  Transmission Date: 20200122
  Serious: No
  Sender: FDA-Public Use
  Company Number: US-SHIRE-US201943308

PATIENT
  Age: 68 Year
  Sex: Female

DRUGS (1)
  1. CUVITRU [Suspect]
     Active Substance: HUMAN IMMUNOGLOBULIN G
     Indication: IMMUNODEFICIENCY COMMON VARIABLE
     Route: 051
     Dates: start: 20191203

REACTIONS (7)
  - Chest discomfort [Unknown]
  - Infusion site pain [Unknown]
  - Pruritus [Unknown]
  - Dyspnoea [Unknown]
  - Cough [Unknown]
  - Infusion site erythema [Unknown]
  - Infusion site warmth [Unknown]
